FAERS Safety Report 23985703 (Version 2)
Quarter: 2024Q3

REPORT INFORMATION
  Report Type: Spontaneous
  Country: US (occurrence: US)
  Receive Date: 20240618
  Receipt Date: 20240701
  Transmission Date: 20241016
  Serious: Yes (Other)
  Sender: TEVA
  Company Number: US-TEVA-VS-3202929

PATIENT
  Age: 29 Year
  Sex: Male

DRUGS (2)
  1. TESTOSTERONE [Suspect]
     Active Substance: TESTOSTERONE
     Indication: Muscle building therapy
     Dosage: RECEIVED A DOSE
     Route: 030
  2. STANOZOLOL [Suspect]
     Active Substance: STANOZOLOL
     Indication: Muscle building therapy
     Dosage: RECEIVED 3 PILLS
     Route: 065

REACTIONS (3)
  - Drug abuse [Unknown]
  - Myocarditis [Recovered/Resolved]
  - Pulmonary oedema [Unknown]
